FAERS Safety Report 7449717-5 (Version None)
Quarter: 2011Q2

REPORT INFORMATION
  Report Type: 
  Country: None (occurrence: None)
  Receive Date: 20110421
  Receipt Date: 20110411
  Transmission Date: 20111010
  Serious: Yes (Hospitalization)
  Sender: FDA-Public Use
  Company Number: UTC-006280

PATIENT
  Age: 46 Year
  Sex: Male

DRUGS (3)
  1. REMODULIN [Suspect]
     Indication: PULMONARY HYPERTENSION
     Dosage: 27.36 UG/KG (0.019 UG/KG, 1 IN 1 MIN), INTRAVENOUS
     Route: 042
     Dates: start: 20110225
  2. DIURETICS (DIURETICS) [Concomitant]
  3. LETAIRIS [Suspect]

REACTIONS (2)
  - NAUSEA [None]
  - ASCITES [None]
